FAERS Safety Report 16308624 (Version 1)
Quarter: 2019Q2

REPORT INFORMATION
  Report Type: Spontaneous
  Country: DE (occurrence: DE)
  Receive Date: 20190514
  Receipt Date: 20190514
  Transmission Date: 20190711
  Serious: Yes (Hospitalization, Other)
  Sender: FDA-Public Use
  Company Number: DE-TEVA-2019-DE-1049099

PATIENT
  Age: 65 Year
  Sex: Male
  Weight: 95 kg

DRUGS (1)
  1. CIPROFLOXACIN. [Suspect]
     Active Substance: CIPROFLOXACIN
     Dosage: 500MG DAILY, FOR UP TO 10 DAYS
     Route: 048
     Dates: start: 20000101, end: 20170911

REACTIONS (6)
  - Intensive care [Not Recovered/Not Resolved]
  - Paralysis [Recovered/Resolved with Sequelae]
  - Aneurysm [Recovered/Resolved with Sequelae]
  - Disability [Not Recovered/Not Resolved]
  - Cerebrovascular accident [Recovered/Resolved with Sequelae]
  - Cerebral haemorrhage [Recovered/Resolved with Sequelae]

NARRATIVE: CASE EVENT DATE: 20170804
